FAERS Safety Report 14516250 (Version 6)
Quarter: 2018Q3

REPORT INFORMATION
  Report Type: Report from Study
  Country: SI (occurrence: SI)
  Receive Date: 20180211
  Receipt Date: 20180801
  Transmission Date: 20181010
  Serious: Yes (Disabling, Other)
  Sender: FDA-Public Use
  Company Number: PHHY2017SI123149

PATIENT
  Age: 59 Year
  Sex: Female

DRUGS (19)
  1. PKC412 [Suspect]
     Active Substance: MIDOSTAURIN
     Dosage: 50 MG, BID
     Route: 048
     Dates: start: 20170906, end: 20170919
  2. CONCOR [Concomitant]
     Active Substance: BISOPROLOL FUMARATE
     Indication: ARRHYTHMIA
     Dosage: 5 MG, UNK
     Route: 048
     Dates: start: 20170711
  3. PANTOPRAZOLE [Concomitant]
     Active Substance: PANTOPRAZOLE
     Indication: PRODUCT USED FOR UNKNOWN INDICATION
     Route: 065
  4. BISOPROLOL [Concomitant]
     Active Substance: BISOPROLOL
     Indication: PRODUCT USED FOR UNKNOWN INDICATION
     Route: 065
  5. PKC412 [Suspect]
     Active Substance: MIDOSTAURIN
     Dosage: 50 MG, BID
     Route: 048
     Dates: start: 20171222, end: 20180126
  6. CANCIDAS [Concomitant]
     Active Substance: CASPOFUNGIN ACETATE
     Indication: ANTIFUNGAL PROPHYLAXIS
     Dosage: 50 MG, UNK
     Route: 042
     Dates: start: 20170714, end: 20170817
  7. ARA?C [Concomitant]
     Active Substance: CYTARABINE
     Indication: ACUTE MYELOID LEUKAEMIA
     Dosage: 3 G, Q12H
     Route: 065
     Dates: start: 20170712
  8. ARA?C [Concomitant]
     Active Substance: CYTARABINE
     Dosage: 3 G, Q12H
     Route: 065
     Dates: start: 20170830
  9. PKC412 [Suspect]
     Active Substance: MIDOSTAURIN
     Dosage: 2 DF, (2X50 MG)
     Route: 048
     Dates: start: 20171031, end: 20171113
  10. PKC412 [Suspect]
     Active Substance: MIDOSTAURIN
     Dosage: 2 DF, (2X50 MG)
     Route: 048
     Dates: start: 20180226
  11. DORETA [Concomitant]
     Active Substance: ACETAMINOPHEN\TRAMADOL HYDROCHLORIDE
     Indication: BACK PAIN
     Dosage: 37.5MG/325 MG AS NEEDED
     Route: 048
     Dates: start: 20170712, end: 20170818
  12. LEVOFLOXACIN. [Concomitant]
     Active Substance: LEVOFLOXACIN
     Indication: ANTIBIOTIC PROPHYLAXIS
     Dosage: 500 MG, UNK
     Route: 048
     Dates: start: 20170728, end: 20170816
  13. CONTROLOC [Concomitant]
     Active Substance: PANTOPRAZOLE SODIUM
     Indication: PROPHYLAXIS
     Dosage: 40 MG, UNK
     Route: 048
     Dates: start: 20170712
  14. TAZOCIN [Concomitant]
     Active Substance: PIPERACILLIN SODIUM\TAZOBACTAM SODIUM
     Indication: INFECTION
     Dosage: 4.5G/8H
     Route: 042
     Dates: start: 20170714, end: 20170727
  15. ARA?C [Concomitant]
     Active Substance: CYTARABINE
     Dosage: 3 G, Q12H
     Route: 065
     Dates: start: 20170901
  16. ARA?C [Concomitant]
     Active Substance: CYTARABINE
     Dosage: 3 G, Q12H
     Route: 065
     Dates: start: 20170903
  17. VANCOMYCIN [Concomitant]
     Active Substance: VANCOMYCIN
     Indication: INFECTION
     Dosage: 1G+0.5G
     Route: 042
     Dates: start: 20170714, end: 20170727
  18. PKC412 [Suspect]
     Active Substance: MIDOSTAURIN
     Indication: ACUTE MYELOID LEUKAEMIA
     Dosage: 50 MG, BID
     Route: 048
     Dates: start: 201706
  19. VALACYCLOVIR [Concomitant]
     Active Substance: VALACYCLOVIR HYDROCHLORIDE
     Indication: ANTIVIRAL PROPHYLAXIS
     Dosage: 2 DF, (2X500 MG)
     Route: 048
     Dates: start: 20170611

REACTIONS (12)
  - Dizziness [Recovering/Resolving]
  - Ankle fracture [Recovering/Resolving]
  - Klebsiella sepsis [Recovering/Resolving]
  - Nausea [Recovered/Resolved]
  - Thrombocytopenia [Not Recovered/Not Resolved]
  - Nausea [Recovered/Resolved]
  - Neutropenia [Recovered/Resolved]
  - Neutropenia [Recovering/Resolving]
  - Febrile neutropenia [Recovered/Resolved]
  - Abdominal discomfort [Not Recovered/Not Resolved]
  - Anaemia [Recovering/Resolving]
  - Nausea [Recovering/Resolving]

NARRATIVE: CASE EVENT DATE: 201707
